FAERS Safety Report 9554547 (Version 2)
Quarter: 2013Q3

REPORT INFORMATION
  Report Type: Spontaneous
  Country: US (occurrence: US)
  Receive Date: 20130925
  Receipt Date: 20130925
  Transmission Date: 20140515
  Serious: Yes (Death)
  Sender: FDA-Public Use
  Company Number: US-TMC-CABO-13003319

PATIENT
  Age: 61 Year
  Sex: Male

DRUGS (9)
  1. COMETRIQ [Suspect]
     Indication: PROSTATE CANCER
     Dosage: 40 MG, QD
     Route: 048
     Dates: start: 20130731, end: 20130905
  2. MORPHINE SULFATE [Concomitant]
  3. PREDNISONE [Concomitant]
  4. OXYCODONE HCL [Concomitant]
  5. CALCIUM [Concomitant]
  6. VITAMIN D [Concomitant]
  7. ASPIRIN [Concomitant]
  8. SENNA [Concomitant]
  9. COLACE [Concomitant]

REACTIONS (2)
  - Death [Fatal]
  - Off label use [Unknown]
